FAERS Safety Report 8255481-2 (Version None)
Quarter: 2012Q1

REPORT INFORMATION
  Report Type: 
  Country: None (occurrence: None)
  Receive Date: 20120330
  Receipt Date: 20120315
  Transmission Date: 20120608
  Serious: Yes (Death)
  Sender: FDA-Public Use
  Company Number: C-12-0093-W

PATIENT
  Age: 51 Year
  Sex: Male

DRUGS (9)
  1. DILTIAZEM HCL [Concomitant]
  2. CEFTRIAXONE [Suspect]
     Indication: PHARYNGITIS
     Dosage: 1G, IV
     Route: 042
     Dates: start: 20120229
  3. CEFTRIAXONE [Suspect]
     Indication: EAR INFECTION
     Dosage: 1G, IV
     Route: 042
     Dates: start: 20120229
  4. ASPIRIN [Concomitant]
  5. CALCIUM CARBONATE [Concomitant]
  6. CALCITRIOL [Concomitant]
  7. PROPAFENONE HCL [Concomitant]
  8. NIFEDIPINE [Concomitant]
  9. CARVEDILOL [Concomitant]

REACTIONS (8)
  - INFUSION RELATED REACTION [None]
  - AGITATION [None]
  - HYPOTENSION [None]
  - DYSPNOEA [None]
  - RESUSCITATION [None]
  - OEDEMA [None]
  - HYPERHIDROSIS [None]
  - UNRESPONSIVE TO STIMULI [None]
